FAERS Safety Report 25634216 (Version 1)
Quarter: 2025Q3

REPORT INFORMATION
  Report Type: Spontaneous
  Country: US (occurrence: US)
  Receive Date: 20250801
  Receipt Date: 20250801
  Transmission Date: 20251020
  Serious: Yes (Life-Threatening, Other)
  Sender: DR REDDYS
  Company Number: US-DRL-USA-USA/2025/07/011253

PATIENT
  Age: 86 Year
  Sex: Female

DRUGS (5)
  1. FAMOTIDINE [Suspect]
     Active Substance: FAMOTIDINE
     Indication: Angioedema
  2. DIPHENHYDRAMINE [Concomitant]
     Active Substance: DIPHENHYDRAMINE
     Indication: Angioedema
  3. DEXAMETHASONE [Concomitant]
     Active Substance: DEXAMETHASONE
     Indication: Angioedema
  4. EPINEPHRINE [Concomitant]
     Active Substance: EPINEPHRINE
     Indication: Angioedema
     Route: 058
  5. TENECTEPLASE [Concomitant]
     Active Substance: TENECTEPLASE
     Indication: Thrombolysis

REACTIONS (1)
  - Drug ineffective for unapproved indication [Unknown]
